FAERS Safety Report 16236348 (Version 5)
Quarter: 2019Q4

REPORT INFORMATION
  Report Type: Spontaneous
  Country: EG (occurrence: EG)
  Receive Date: 20190425
  Receipt Date: 20191018
  Transmission Date: 20200122
  Serious: Yes (Death, Other)
  Sender: FDA-Public Use
  Company Number: EG-SA-2018SA278745

PATIENT
  Age: 3 Year
  Sex: Male
  Weight: 9 kg

DRUGS (2)
  1. CEREZYME [Suspect]
     Active Substance: IMIGLUCERASE
     Indication: GAUCHER^S DISEASE
     Dosage: 60 MG/KG, QOW
     Route: 042
     Dates: start: 20161003, end: 20170810
  2. SODIUM VALPROATE [Suspect]
     Active Substance: VALPROATE SODIUM
     Dosage: UNK
     Route: 065

REACTIONS (9)
  - Seizure [Fatal]
  - Condition aggravated [Unknown]
  - Lower respiratory tract infection [Unknown]
  - Hypophagia [Unknown]
  - Marasmus [Unknown]
  - Mental disorder [Unknown]
  - Electrocardiogram abnormal [Unknown]
  - Dehydration [Unknown]
  - Strabismus [Unknown]

NARRATIVE: CASE EVENT DATE: 2016
